FAERS Safety Report 25871400 (Version 1)
Quarter: 2025Q4

REPORT INFORMATION
  Report Type: Spontaneous
  Country: US (occurrence: US)
  Receive Date: 20251001
  Receipt Date: 20251001
  Transmission Date: 20260117
  Serious: Yes (Other)
  Sender: ABBVIE
  Company Number: US-ABBVIE-6485048

PATIENT

DRUGS (10)
  1. SYNTHROID [Suspect]
     Active Substance: LEVOTHYROXINE SODIUM
     Indication: Product used for unknown indication
     Route: 048
  2. FLECAINIDE [Suspect]
     Active Substance: FLECAINIDE
     Indication: Product used for unknown indication
     Route: 065
  3. CRESTOR [Suspect]
     Active Substance: ROSUVASTATIN CALCIUM
     Indication: Product used for unknown indication
     Route: 065
  4. METOPROLOL SUCCINATE [Suspect]
     Active Substance: METOPROLOL SUCCINATE
     Indication: Product used for unknown indication
     Route: 065
  5. MODERNA COVID-19 VACCINE, BIVALENT (DAVESOMERAN\ELASOMERAN) [Suspect]
     Active Substance: DAVESOMERAN\ELASOMERAN
     Indication: COVID-19 prophylaxis
     Route: 030
     Dates: start: 20220923
  6. MODERNA COVID-19 VACCINE, BIVALENT (DAVESOMERAN\ELASOMERAN) [Suspect]
     Active Substance: DAVESOMERAN\ELASOMERAN
     Indication: COVID-19 prophylaxis
     Dosage: DOSE 1
     Route: 030
     Dates: start: 20210128, end: 20210128
  7. MODERNA COVID-19 VACCINE, BIVALENT (DAVESOMERAN\ELASOMERAN) [Suspect]
     Active Substance: DAVESOMERAN\ELASOMERAN
     Indication: COVID-19 prophylaxis
     Dosage: DOSE 2
     Route: 030
     Dates: start: 20210225, end: 20210225
  8. MODERNA COVID-19 VACCINE, BIVALENT (DAVESOMERAN\ELASOMERAN) [Suspect]
     Active Substance: DAVESOMERAN\ELASOMERAN
     Indication: COVID-19 prophylaxis
     Dosage: BOOSTER
     Route: 030
     Dates: start: 20211116, end: 20211116
  9. MODERNA COVID-19 VACCINE, BIVALENT (DAVESOMERAN\ELASOMERAN) [Suspect]
     Active Substance: DAVESOMERAN\ELASOMERAN
     Indication: COVID-19 prophylaxis
     Dosage: SECOND BOOSTER
     Route: 030
     Dates: start: 20220531, end: 20220531
  10. ELIQUIS [Suspect]
     Active Substance: APIXABAN
     Indication: Product used for unknown indication
     Route: 065

REACTIONS (2)
  - Atrial fibrillation [Not Recovered/Not Resolved]
  - Fall [Not Recovered/Not Resolved]

NARRATIVE: CASE EVENT DATE: 20221029
